FAERS Safety Report 13149076 (Version 1)
Quarter: 2017Q1

REPORT INFORMATION
  Report Type: Spontaneous
  Country: US (occurrence: US)
  Receive Date: 20170125
  Receipt Date: 20170125
  Transmission Date: 20170428
  Serious: Yes (Other)
  Sender: FDA-Public Use
  Company Number: US-SHIRE-US201701319

PATIENT
  Age: 26 Year
  Sex: Male
  Weight: 139.68 kg

DRUGS (1)
  1. ELAPRASE [Suspect]
     Active Substance: IDURSULFASE
     Indication: MUCOPOLYSACCHARIDOSIS II
     Dosage: 60 MG, 1X/WEEK
     Route: 041
     Dates: start: 20150224

REACTIONS (4)
  - Cough [Unknown]
  - Rhinorrhoea [Unknown]
  - Pyrexia [Unknown]
  - Respiratory distress [Unknown]

NARRATIVE: CASE EVENT DATE: 201612
